FAERS Safety Report 10149321 (Version 1)
Quarter: 2014Q2

REPORT INFORMATION
  Report Type: Spontaneous
  Country: US (occurrence: None)
  Receive Date: 20140501
  Receipt Date: 20140501
  Transmission Date: 20141212
  Serious: No
  Sender: FDA-Public Use
  Company Number: None

PATIENT
  Age: 42 Year
  Sex: Female

DRUGS (1)
  1. NEXAVAR 200 MG BAYER [Suspect]
     Route: 048
     Dates: start: 20120827

REACTIONS (4)
  - Muscle spasms [None]
  - Incontinence [None]
  - Diarrhoea [None]
  - Memory impairment [None]
